FAERS Safety Report 6691683-4 (Version None)
Quarter: 2010Q2

REPORT INFORMATION
  Report Type: 
  Country: None (occurrence: None)
  Receive Date: 20100422
  Receipt Date: 20090922
  Transmission Date: 20101027
  Serious: No
  Sender: FDA-Public Use
  Company Number: US-ASTRAZENECA-2009SE14562

PATIENT
  Age: 73 Year
  Sex: Female
  Weight: 54.4 kg

DRUGS (3)
  1. METOPROLOL SUCCINATE [Suspect]
     Indication: HYPERTENSION
     Route: 048
     Dates: start: 20090101
  2. CRESTOR [Concomitant]
  3. LOW DOSE ASA [Concomitant]

REACTIONS (5)
  - DIZZINESS [None]
  - HYPERTENSION [None]
  - INSOMNIA [None]
  - NAUSEA [None]
  - NIGHTMARE [None]
